FAERS Safety Report 12433706 (Version 2)
Quarter: 2016Q3

REPORT INFORMATION
  Report Type: Spontaneous
  Country: None (occurrence: GB)
  Receive Date: 20160603
  Receipt Date: 20160921
  Transmission Date: 20161109
  Serious: Yes (Hospitalization)
  Sender: FDA-Public Use
  Company Number: GB-MEDAC PHARMA, INC.-1053204

PATIENT
  Sex: Female

DRUGS (1)
  1. METOJECT PEN [Suspect]
     Active Substance: METHOTREXATE

REACTIONS (6)
  - Musculoskeletal chest pain [Unknown]
  - Fall [Unknown]
  - Musculoskeletal pain [Unknown]
  - Back pain [Unknown]
  - Headache [Unknown]
  - Malaise [Unknown]
